FAERS Safety Report 11430375 (Version 1)
Quarter: 2015Q3

REPORT INFORMATION
  Report Type: Spontaneous
  Country: US (occurrence: US)
  Receive Date: 20150828
  Receipt Date: 20150828
  Transmission Date: 20151125
  Serious: Yes (Other)
  Sender: FDA-Public Use
  Company Number: PHEH2015US001322

PATIENT
  Sex: Female
  Weight: 58.96 kg

DRUGS (1)
  1. RECLAST [Suspect]
     Active Substance: ZOLEDRONIC ACID
     Indication: OSTEOPOROSIS
     Dosage: 5 MG
     Route: 042
     Dates: start: 20131206

REACTIONS (4)
  - Blood calcium increased [Unknown]
  - Bone density decreased [Unknown]
  - Atrial fibrillation [Recovering/Resolving]
  - Glomerular filtration rate decreased [Unknown]
